FAERS Safety Report 20028755 (Version 2)
Quarter: 2022Q1

REPORT INFORMATION
  Report Type: Report from Study
  Country: US (occurrence: US)
  Receive Date: 20211103
  Receipt Date: 20220324
  Transmission Date: 20220423
  Serious: Yes (Other)
  Sender: FDA-Public Use
  Company Number: US-ABBVIE-21K-163-4099544-00

PATIENT
  Age: 50 Year
  Sex: Female

DRUGS (5)
  1. RINVOQ [Suspect]
     Active Substance: UPADACITINIB
     Indication: Rheumatoid arthritis
     Route: 048
  2. PFIZER-BIONTECH COVID-19 VACCINE [Concomitant]
     Active Substance: TOZINAMERAN
     Indication: COVID-19 immunisation
     Route: 030
     Dates: start: 20210316, end: 20210316
  3. PFIZER-BIONTECH COVID-19 VACCINE [Concomitant]
     Active Substance: TOZINAMERAN
     Route: 030
     Dates: start: 20210406, end: 20210406
  4. PFIZER-BIONTECH COVID-19 VACCINE [Concomitant]
     Active Substance: TOZINAMERAN
     Dosage: BOOSTER SHOT
     Route: 030
     Dates: start: 20210823, end: 20210823
  5. MODERNA COVID-19 VACCINE [Concomitant]
     Active Substance: ELASOMERAN
     Indication: COVID-19 immunisation
     Route: 030
     Dates: start: 20220215, end: 20220215

REACTIONS (5)
  - Fallopian tube cyst [Recovered/Resolved]
  - Gastroenteritis viral [Unknown]
  - Nephrolithiasis [Unknown]
  - Sinusitis bacterial [Recovered/Resolved]
  - Angiolipoma [Recovered/Resolved]

NARRATIVE: CASE EVENT DATE: 20211001
